FAERS Safety Report 4846715-2 (Version None)
Quarter: 2005Q4

REPORT INFORMATION
  Report Type: 
  Country: None (occurrence: None)
  Receive Date: 20051206
  Receipt Date: 20051130
  Transmission Date: 20060501
  Serious: Yes (Hospitalization, Disabling, Other)
  Sender: FDA-Public Use
  Company Number: US-MERCK-0512USA00135

PATIENT
  Age: 56 Year
  Sex: Female
  Weight: 95 kg

DRUGS (8)
  1. VIOXX [Suspect]
     Indication: ARTHRITIS
     Route: 048
     Dates: start: 20010101, end: 20020101
  2. VIOXX [Suspect]
     Indication: NEUROPATHY
     Route: 048
     Dates: start: 20010101, end: 20020101
  3. LIPITOR [Concomitant]
     Route: 065
  4. LASIX [Concomitant]
     Route: 065
  5. NORVASC [Concomitant]
     Route: 065
  6. HYDROXYZINE PAMOATE [Concomitant]
     Route: 065
  7. TRAZODONE HYDROCHLORIDE [Concomitant]
     Route: 065
  8. EFFEXOR [Concomitant]
     Route: 065

REACTIONS (8)
  - ABDOMINAL PAIN UPPER [None]
  - CARDIAC DISORDER [None]
  - CARDIAC FAILURE CONGESTIVE [None]
  - CONDITION AGGRAVATED [None]
  - DEPRESSION [None]
  - DYSPNOEA [None]
  - HAEMORRHAGE [None]
  - MYOCARDIAL INFARCTION [None]
